FAERS Safety Report 24978237 (Version 1)
Quarter: 2025Q1

REPORT INFORMATION
  Report Type: Spontaneous
  Country: FR (occurrence: FR)
  Receive Date: 20250217
  Receipt Date: 20250217
  Transmission Date: 20250409
  Serious: Yes (Hospitalization)
  Sender: BEXIMCO PHARMACEUTICALS
  Company Number: FR-BEXIMCO-2025BEX00008

PATIENT
  Age: 44 Year
  Sex: Male

DRUGS (3)
  1. BACLOFEN [Suspect]
     Active Substance: BACLOFEN
     Route: 037
  2. BACLOFEN [Suspect]
     Active Substance: BACLOFEN
     Route: 037
  3. BACLOFEN [Suspect]
     Active Substance: BACLOFEN
     Route: 048

REACTIONS (4)
  - Sinus bradycardia [Recovering/Resolving]
  - Tachycardia [Recovering/Resolving]
  - Generalised tonic-clonic seizure [Recovering/Resolving]
  - Overdose [Unknown]
